FAERS Safety Report 5061347-1 (Version None)
Quarter: 2006Q3

REPORT INFORMATION
  Report Type: 
  Country: None (occurrence: None)
  Receive Date: 20060725
  Receipt Date: 20060717
  Transmission Date: 20061208
  Serious: Yes (Death)
  Sender: FDA-Public Use
  Company Number: IL-NOVOPROD-255110

PATIENT
  Sex: Female

DRUGS (1)
  1. NOVOSEVEN [Suspect]
     Indication: BIRTH TRAUMA
     Dosage: 2.4 MG, UNK
     Dates: start: 20051129

REACTIONS (2)
  - BIRTH TRAUMA [None]
  - DEATH [None]
